FAERS Safety Report 24617783 (Version 2)
Quarter: 2025Q1

REPORT INFORMATION
  Report Type: Report from Study
  Country: CA (occurrence: CA)
  Receive Date: 20241114
  Receipt Date: 20250124
  Transmission Date: 20250409
  Serious: Yes (Death, Hospitalization, Other)
  Sender: BIOCON
  Company Number: CA-BIOCON BIOLOGICS LIMITED-BBL2024007013

PATIENT

DRUGS (2)
  1. HULIO [Suspect]
     Active Substance: ADALIMUMAB-FKJP
     Indication: Rheumatoid arthritis
     Route: 058
  2. HULIO [Suspect]
     Active Substance: ADALIMUMAB-FKJP
     Route: 058
     Dates: start: 20230719

REACTIONS (4)
  - Death [Fatal]
  - Lung disorder [Unknown]
  - Knee operation [Unknown]
  - Loss of personal independence in daily activities [Unknown]
